FAERS Safety Report 16817362 (Version 2)
Quarter: 2019Q4

REPORT INFORMATION
  Report Type: Report from Study
  Country: US (occurrence: US)
  Receive Date: 20190917
  Receipt Date: 20191014
  Transmission Date: 20200122
  Serious: Yes (Death, Hospitalization)
  Sender: FDA-Public Use
  Company Number: US-EXELIXIS-XL18419023762

PATIENT
  Age: 75 Year
  Sex: Female
  Weight: 53.03 kg

DRUGS (9)
  1. ELIQUIS [Concomitant]
     Active Substance: APIXABAN
     Indication: CEREBROVASCULAR ACCIDENT
  2. CABOZANTINIB [Suspect]
     Active Substance: CABOZANTINIB
     Indication: CLEAR CELL RENAL CELL CARCINOMA
     Dosage: 60 MG, QD
     Route: 048
     Dates: start: 20190524, end: 20190816
  3. ELIQUIS [Concomitant]
     Active Substance: APIXABAN
     Indication: PULMONARY EMBOLISM
     Dosage: 2.5 MG, BID
     Route: 048
  4. MARINOL [Concomitant]
     Active Substance: DRONABINOL
     Route: 048
  5. NALOXEGOL [Concomitant]
     Active Substance: NALOXEGOL
     Route: 048
  6. LEVOTHYROXINE. [Concomitant]
     Active Substance: LEVOTHYROXINE
     Indication: HYPOTHYROIDISM
     Route: 048
  7. FENTANYL. [Concomitant]
     Active Substance: FENTANYL
     Route: 061
  8. CB-839 OR PLACEBO [Suspect]
     Active Substance: TELAGLENASTAT
     Indication: CLEAR CELL RENAL CELL CARCINOMA
     Dosage: 800 MG, BID
     Route: 048
     Dates: start: 20190524, end: 20190816
  9. HYDROCORTISONE. [Concomitant]
     Active Substance: HYDROCORTISONE
     Route: 048

REACTIONS (3)
  - Bacteraemia [Not Recovered/Not Resolved]
  - Urinary tract infection [Not Recovered/Not Resolved]
  - Cellulitis [Not Recovered/Not Resolved]

NARRATIVE: CASE EVENT DATE: 20190825
